FAERS Safety Report 5567882-1 (Version None)
Quarter: 2007Q4

REPORT INFORMATION
  Report Type: 
  Country: None (occurrence: None)
  Receive Date: 20071218
  Receipt Date: 20071211
  Transmission Date: 20080405
  Serious: Yes (Hospitalization, Disabling)
  Sender: FDA-Public Use
  Company Number: TPA2007A02269

PATIENT
  Age: 71 Year
  Sex: Female
  Weight: 70.3075 kg

DRUGS (8)
  1. ACTOS [Suspect]
     Indication: TYPE 2 DIABETES MELLITUS
     Dosage: 15 MG, 1 IN 1 D, PER ORAL
     Route: 048
     Dates: start: 20030101
  2. CELEBREX [Suspect]
     Indication: ARTHRITIS
     Dosage: 200 MG, 2 IN 1 D, PER ORAL
     Route: 048
     Dates: start: 20050901, end: 20061101
  3. METFORMIN (METFORMIN) [Concomitant]
  4. NIACIN [Concomitant]
  5. ACCURETIC [Concomitant]
  6. NEXIUM [Concomitant]
  7. VERAPAMIL ER (VERAPAMIL) [Concomitant]
  8. ASPIRIN [Concomitant]

REACTIONS (3)
  - HIP ARTHROPLASTY [None]
  - POST PROCEDURAL COMPLICATION [None]
  - SMALL INTESTINAL HAEMORRHAGE [None]
